FAERS Safety Report 14740412 (Version 1)
Quarter: 2018Q2

REPORT INFORMATION
  Report Type: Report from Study
  Country: RO (occurrence: RO)
  Receive Date: 20180410
  Receipt Date: 20180410
  Transmission Date: 20180711
  Serious: Yes (Other)
  Sender: FDA-Public Use
  Company Number: RO-ROCHE-2101619

PATIENT
  Age: 55 Year
  Sex: Male

DRUGS (5)
  1. DASABUVIR [Suspect]
     Active Substance: DASABUVIR
     Indication: CHRONIC HEPATITIS C
     Dosage: UNK
     Route: 065
  2. RIBAVIRIN. [Suspect]
     Active Substance: RIBAVIRIN
     Indication: CHRONIC HEPATITIS C
     Dosage: UNK
     Route: 048
  3. OMBITASVIR [Suspect]
     Active Substance: OMBITASVIR
     Indication: CHRONIC HEPATITIS C
     Dosage: UNK
     Route: 065
  4. RITONAVIR. [Suspect]
     Active Substance: RITONAVIR
     Indication: CHRONIC HEPATITIS C
     Dosage: UNK
     Route: 065
  5. PARITAPREVIR [Suspect]
     Active Substance: PARITAPREVIR
     Indication: CHRONIC HEPATITIS C
     Dosage: UNK
     Route: 065

REACTIONS (1)
  - Hepatitis B reactivation [Unknown]
